FAERS Safety Report 23164564 (Version 2)
Quarter: 2023Q4

REPORT INFORMATION
  Report Type: Report from Study
  Country: US (occurrence: US)
  Receive Date: 20231109
  Receipt Date: 20231115
  Transmission Date: 20240110
  Serious: No
  Sender: FDA-Public Use
  Company Number: US-AGIOS-2311US03525

PATIENT

DRUGS (1)
  1. MITAPIVAT [Suspect]
     Active Substance: MITAPIVAT
     Indication: Product used for unknown indication
     Dosage: 50 MILLIGRAM
     Route: 065

REACTIONS (3)
  - Haemoglobin decreased [Recovered/Resolved]
  - Seasonal allergy [Recovered/Resolved]
  - Fatigue [Recovered/Resolved]
